FAERS Safety Report 6652687-0 (Version None)
Quarter: 2010Q1

REPORT INFORMATION
  Report Type: 
  Country: None (occurrence: None)
  Receive Date: 20100326
  Receipt Date: 20100312
  Transmission Date: 20100710
  Serious: Yes (Other)
  Sender: FDA-Public Use
  Company Number: IT-RANBAXY-2010RR-32206

PATIENT
  Age: 47 Year
  Sex: Female

DRUGS (7)
  1. CLARITHROMYCIN [Suspect]
     Indication: INFECTION
     Dosage: 250 MG, BID
     Dates: start: 20080220
  2. BOSENTAN [Suspect]
     Dosage: 62.5 MG, BID
     Dates: start: 20080111
  3. BOSENTAN [Suspect]
     Dosage: 125 MG, UNK
  4. ILOPROST [Concomitant]
     Dosage: UNK
     Route: 042
  5. NIFEDIPINE [Concomitant]
     Dosage: 20 MG, UNK
  6. ASPIRIN [Concomitant]
     Dosage: 100 MG, UNK
  7. PENTOXIFYLLINE [Concomitant]
     Dosage: 400 MG, BID

REACTIONS (2)
  - DRUG INTERACTION [None]
  - LIVER DISORDER [None]
